FAERS Safety Report 7096721-5 (Version None)
Quarter: 2010Q4

REPORT INFORMATION
  Report Type: 
  Country: None (occurrence: None)
  Receive Date: 20101111
  Receipt Date: 20090309
  Transmission Date: 20110411
  Serious: No
  Sender: FDA-Public Use
  Company Number: US-KINGPHARMUSA00001-K200900257

PATIENT
  Age: 50 Year
  Sex: Male
  Weight: 113.38 kg

DRUGS (5)
  1. ALTACE [Suspect]
     Indication: CARDIOMYOPATHY
     Dosage: 5 MG, BID
     Route: 048
     Dates: start: 20050101
  2. ZETIA [Concomitant]
     Dosage: UNK
     Route: 048
  3. TRICOR [Concomitant]
     Indication: HYPERTRIGLYCERIDAEMIA
     Dosage: UNK
     Route: 048
  4. COREG [Concomitant]
     Indication: CARDIOMYOPATHY
     Dosage: UNK
     Route: 048
  5. PRAVACHOL [Concomitant]
     Indication: HYPERCHOLESTEROLAEMIA
     Dosage: UNK
     Route: 048

REACTIONS (2)
  - DYSPHAGIA [None]
  - NAUSEA [None]
